FAERS Safety Report 7825358-2 (Version None)
Quarter: 2011Q4

REPORT INFORMATION
  Report Type: 
  Country: None (occurrence: None)
  Receive Date: 20111019
  Receipt Date: 20111012
  Transmission Date: 20120403
  Serious: Yes (Other)
  Sender: FDA-Public Use
  Company Number: PHHO2011FR17259

PATIENT
  Age: 40 Year
  Sex: Female

DRUGS (6)
  1. FLUCONAZOLE [Suspect]
     Indication: STEM CELL TRANSPLANT
     Dosage: 400 MG, QD
     Dates: start: 20081031
  2. FLUDARABINE PHOSPHATE [Concomitant]
     Indication: STEM CELL TRANSPLANT
     Dosage: 45 MG, QD
     Dates: start: 20081023, end: 20081026
  3. BUSULFAN [Concomitant]
     Indication: STEM CELL TRANSPLANT
     Dosage: 40 MG 4 TIMES A DAY
     Dates: start: 20081023, end: 20081024
  4. THYMOGLOBULIN [Concomitant]
     Dosage: 125 MG, QD
     Dates: start: 20081025, end: 20081026
  5. NEORAL [Suspect]
     Indication: STEM CELL TRANSPLANT
     Dosage: UNK
     Dates: start: 20081025
  6. MYCOPHENOLATE MOFETIL [Suspect]
     Indication: STEM CELL TRANSPLANT
     Dosage: 500 MG, BID
     Dates: start: 20081029

REACTIONS (1)
  - BONE MARROW FAILURE [None]
